FAERS Safety Report 5122630-4 (Version None)
Quarter: 2006Q4

REPORT INFORMATION
  Report Type: 
  Country: None (occurrence: None)
  Receive Date: 20061004
  Receipt Date: 20060920
  Transmission Date: 20070319
  Serious: Yes (Other)
  Sender: FDA-Public Use
  Company Number: CIP06002170

PATIENT
  Age: 16 Year
  Sex: Female

DRUGS (5)
  1. DANTRIUM [Suspect]
     Indication: ANALGESIC THERAPY
     Dosage: ORAL
     Route: 048
  2. METHOTREXATE [Suspect]
     Indication: OSTEOSARCOMA LOCALISED
     Dosage: 18 G, 1 ONLY, IV DRIP; 10 G; 16 ADDITIONAL HIGH COURSES
     Route: 041
  3. ONDANSETRON [Concomitant]
  4. METHYLPREDNISOLONE (METHYLPREDNIDOLONE) [Concomitant]
  5. NALBUPHINE [Concomitant]

REACTIONS (9)
  - BLOOD PRESSURE INCREASED [None]
  - CONVULSION [None]
  - CYTOLYTIC HEPATITIS [None]
  - DRUG INTERACTION [None]
  - DRUG TOXICITY [None]
  - MUCOSAL INFLAMMATION [None]
  - RENAL FAILURE [None]
  - THROMBOCYTOPENIA [None]
  - TUBULOINTERSTITIAL NEPHRITIS [None]
